FAERS Safety Report 8234588-X (Version None)
Quarter: 2012Q1

REPORT INFORMATION
  Report Type: 
  Country: None (occurrence: None)
  Receive Date: 20120326
  Receipt Date: 20120120
  Transmission Date: 20120608
  Serious: No
  Sender: FDA-Public Use
  Company Number: US-MYLANLABS-2012S1001447

PATIENT
  Age: 80 Year
  Sex: Female
  Weight: 71.67 kg

DRUGS (2)
  1. NIFEDIPINE [Suspect]
     Indication: BLOOD PRESSURE INCREASED
     Route: 048
     Dates: start: 20111227, end: 20111228
  2. METOPROLOL SUCCINATE [Concomitant]
     Indication: BLOOD PRESSURE INCREASED
     Route: 048

REACTIONS (6)
  - BLOOD PRESSURE INCREASED [None]
  - OEDEMA MOUTH [None]
  - LIP OEDEMA [None]
  - DRUG INEFFECTIVE [None]
  - MALAISE [None]
  - HEADACHE [None]
